FAERS Safety Report 8941575 (Version 1)
Quarter: 2012Q4

REPORT INFORMATION
  Report Type: 
  Country: US (occurrence: US)
  Receive Date: 20121203
  Receipt Date: 20121203
  Transmission Date: 20130627
  Serious: Yes (Hospitalization, Other)
  Sender: FDA-Public Use
  Company Number: US-PFIZER INC-2012301671

PATIENT
  Age: 59 Year
  Sex: Male
  Weight: 79.37 kg

DRUGS (1)
  1. LYRICA [Suspect]
     Indication: DIABETIC NEUROPATHY
     Dosage: 100 mg as needed (upto three times in a day)
     Dates: start: 2005, end: 201211

REACTIONS (3)
  - Blister [Unknown]
  - Wound [Unknown]
  - Sensory loss [Unknown]
